FAERS Safety Report 7105361-0 (Version None)
Quarter: 2010Q4

REPORT INFORMATION
  Report Type: 
  Country: None (occurrence: None)
  Receive Date: 20101116
  Receipt Date: 20101112
  Transmission Date: 20110411
  Serious: Yes (Life-Threatening, Hospitalization)
  Sender: FDA-Public Use
  Company Number: GB-PERRIGO-10GB014738

PATIENT
  Age: 87 Year
  Sex: Male

DRUGS (4)
  1. NAPROXEN SODIUM [Suspect]
     Indication: MUSCULOSKELETAL PAIN
     Dosage: 250 MG, TID
     Route: 048
     Dates: end: 20101025
  2. ASPIRIN [Suspect]
     Indication: ANTIPLATELET THERAPY
     Dosage: 75 MG, QD
     Route: 048
     Dates: end: 20101025
  3. CIPRALEX [Suspect]
     Indication: DEPRESSION
     Dosage: 15 MG, QD
     Route: 048
     Dates: end: 20101027
  4. OMEPRAZOLE [Concomitant]
     Indication: PROPHYLAXIS
     Dosage: 200 MG, QD
     Route: 048
     Dates: end: 20101027

REACTIONS (1)
  - CEREBRAL HAEMORRHAGE [None]
